FAERS Safety Report 11876529 (Version 1)
Quarter: 2015Q4

REPORT INFORMATION
  Report Type: Spontaneous
  Country: US (occurrence: US)
  Receive Date: 20151229
  Receipt Date: 20151229
  Transmission Date: 20160305
  Serious: Yes (Congenital Anomaly, Other)
  Sender: FDA-Public Use
  Company Number: US-HQ SPECIALTY-US-2015INT000718

PATIENT

DRUGS (4)
  1. PACLITAXEL. [Suspect]
     Active Substance: PACLITAXEL
     Indication: MATERNAL EXPOSURE TIMING UNSPECIFIED
     Dosage: UNK DF, UNK
     Route: 064
  2. ADRIAMYCIN [Suspect]
     Active Substance: DOXORUBICIN HYDROCHLORIDE
     Indication: MATERNAL EXPOSURE TIMING UNSPECIFIED
     Dosage: UNK DF, UNK
     Route: 064
  3. DOCETAXEL. [Suspect]
     Active Substance: DOCETAXEL
     Indication: MATERNAL EXPOSURE TIMING UNSPECIFIED
     Dosage: UNK DF, UNK
     Route: 064
  4. CYTOXAN [Suspect]
     Active Substance: CYCLOPHOSPHAMIDE
     Indication: MATERNAL EXPOSURE TIMING UNSPECIFIED
     Dosage: UNK DF, UNK
     Route: 064

REACTIONS (5)
  - Neutropenia neonatal [Recovered/Resolved]
  - Foetal exposure during pregnancy [Recovered/Resolved]
  - Premature baby [Recovered/Resolved]
  - Pyloric stenosis [Recovered/Resolved]
  - Low birth weight baby [Recovered/Resolved]
